FAERS Safety Report 12882012 (Version 3)
Quarter: 2016Q4

REPORT INFORMATION
  Report Type: Spontaneous
  Country: IT (occurrence: IT)
  Receive Date: 20161025
  Receipt Date: 20161205
  Transmission Date: 20170207
  Serious: Yes (Life-Threatening, Other)
  Sender: FDA-Public Use
  Company Number: IT-TEVA-705963ACC

PATIENT
  Age: 92 Year
  Sex: Female
  Weight: 50 kg

DRUGS (5)
  1. TRITTICO - 60 MG/ML GOCCE ORALI, SOLUZIONE [Interacting]
     Active Substance: TRAZODONE HYDROCHLORIDE
     Indication: AGITATION
     Dosage: 10 GTT DAILY;
     Route: 048
     Dates: end: 20161003
  2. CITALOPRAM [Suspect]
     Active Substance: CITALOPRAM HYDROBROMIDE
     Indication: AGITATION
     Route: 048
     Dates: end: 20161003
  3. IPERTEN - 20 MG COMPRESSE [Concomitant]
     Active Substance: MANIDIPINE HYDROCHLORIDE
     Indication: HYPERTENSION
     Dosage: 1 DF
  4. QUENTIAX - KRKA D.D. NOVO MESTO [Interacting]
     Active Substance: QUETIAPINE FUMARATE
     Indication: AGITATION
     Dosage: 100 MILLIGRAM DAILY;
     Route: 048
  5. NIMODIPINE. [Concomitant]
     Active Substance: NIMODIPINE
     Indication: PRODUCT USED FOR UNKNOWN INDICATION
     Dosage: 15 MG
     Route: 042

REACTIONS (2)
  - Drug interaction [Recovered/Resolved]
  - Torsade de pointes [Recovered/Resolved]

NARRATIVE: CASE EVENT DATE: 20161001
